FAERS Safety Report 5787935-2 (Version None)
Quarter: 2008Q2

REPORT INFORMATION
  Report Type: 
  Country: None (occurrence: None)
  Receive Date: 20080625
  Receipt Date: 20080618
  Transmission Date: 20081010
  Serious: Yes (Hospitalization, Other)
  Sender: FDA-Public Use
  Company Number: B0524506A

PATIENT
  Age: 22 Year
  Sex: Male

DRUGS (2)
  1. SUPACEF [Suspect]
     Indication: PROPHYLAXIS
     Dosage: 170MG PER DAY
     Route: 042
     Dates: start: 20080603, end: 20080603
  2. AMIKACIN [Concomitant]
     Route: 042

REACTIONS (2)
  - CHILLS [None]
  - EXPIRED DRUG ADMINISTERED [None]
